FAERS Safety Report 11231257 (Version 2)
Quarter: 2015Q3

REPORT INFORMATION
  Report Type: Spontaneous
  Country: DE (occurrence: DE)
  Receive Date: 20150701
  Receipt Date: 20150921
  Transmission Date: 20151125
  Serious: Yes (Hospitalization, Other)
  Sender: FDA-Public Use
  Company Number: DE-PFIZER INC-2015214257

PATIENT
  Age: 38 Year
  Sex: Male

DRUGS (2)
  1. DOXYCYCLINE MONOHYDRATE [Suspect]
     Active Substance: DOXYCYCLINE
     Dosage: 1 G, DAILY
     Route: 048
     Dates: end: 199701
  2. DOXYCYCLINE MONOHYDRATE [Suspect]
     Active Substance: DOXYCYCLINE
     Indication: PYREXIA
     Dosage: 100 MG, UNK
     Route: 048
     Dates: start: 1984

REACTIONS (12)
  - Intentional product misuse [Unknown]
  - Anaemia [Recovered/Resolved]
  - Nephropathy toxic [Unknown]
  - Skin hyperpigmentation [Recovering/Resolving]
  - Hepatic steatosis [Unknown]
  - Sinus tachycardia [Unknown]
  - Toxicity to various agents [Unknown]
  - Cholestasis [Unknown]
  - Atrioventricular block second degree [Unknown]
  - Supraventricular tachycardia [Unknown]
  - Hepatic necrosis [Unknown]
  - Leukopenia [Unknown]

NARRATIVE: CASE EVENT DATE: 199603
